FAERS Safety Report 21891444 (Version 1)
Quarter: 2023Q1

REPORT INFORMATION
  Report Type: Spontaneous
  Country: US (occurrence: None)
  Receive Date: 20230119
  Receipt Date: 20230119
  Transmission Date: 20230417
  Serious: Yes (Death)
  Sender: FDA-Public Use
  Company Number: None

PATIENT
  Age: 87 Year
  Sex: Male
  Weight: 73.03 kg

DRUGS (12)
  1. INLYTA [Suspect]
     Active Substance: AXITINIB
     Indication: Renal cancer
     Dosage: FREQUENCY : TWICE A DAY;?
     Route: 048
  2. ASPIRIN [Concomitant]
     Active Substance: ASPIRIN
  3. DOCUSATE [Concomitant]
     Active Substance: DOCUSATE
  4. FINASTERIDE [Concomitant]
     Active Substance: FINASTERIDE
  5. GUAIFENESIN [Concomitant]
     Active Substance: GUAIFENESIN
  6. NORCO [Concomitant]
     Active Substance: ACETAMINOPHEN\HYDROCODONE BITARTRATE
  7. HYDROXYCHLOROQUINE SULFATE [Concomitant]
     Active Substance: HYDROXYCHLOROQUINE SULFATE
  8. LORATADINE [Concomitant]
     Active Substance: LORATADINE
  9. MILK OF MAGNESIA [Concomitant]
     Active Substance: MAGNESIUM HYDROXIDE
  10. MOVANTIK [Concomitant]
     Active Substance: NALOXEGOL OXALATE
  11. OXYBUTYNIN [Concomitant]
     Active Substance: OXYBUTYNIN
  12. TAMSULOSIN [Concomitant]
     Active Substance: TAMSULOSIN

REACTIONS (1)
  - Death [None]
